FAERS Safety Report 6693388-2 (Version None)
Quarter: 2010Q2

REPORT INFORMATION
  Report Type: 
  Country: None (occurrence: None)
  Receive Date: 20100420
  Receipt Date: 20100407
  Transmission Date: 20101027
  Serious: Yes (Other)
  Sender: FDA-Public Use
  Company Number: 010160

PATIENT
  Age: 72 Year
  Sex: Male

DRUGS (5)
  1. NITROGLYCERIN [Suspect]
     Indication: ARTERIOSPASM CORONARY
     Dosage: (REPETITIVE INTRACORONARY INFUSION INTRACORONERAY)
     Route: 022
  2. DOPAMINE HCL [Concomitant]
  3. BETA BLOCKING AGENTS [Concomitant]
  4. ACETYLSALICYLIC ACID [Concomitant]
  5. CALCIUM CHANNEL BLOCKERS [Concomitant]

REACTIONS (5)
  - ARTERIOSPASM CORONARY [None]
  - CORONARY ARTERY STENOSIS [None]
  - HYPOTENSION [None]
  - MYOCARDIAL ISCHAEMIA [None]
  - VENTRICULAR HYPOKINESIA [None]
